FAERS Safety Report 22888780 (Version 2)
Quarter: 2023Q4

REPORT INFORMATION
  Report Type: Spontaneous
  Country: US (occurrence: US)
  Receive Date: 20230831
  Receipt Date: 20231121
  Transmission Date: 20240110
  Serious: Yes (Life-Threatening, Hospitalization, Other)
  Sender: FDA-Public Use
  Company Number: US-BRISTOL-MYERS SQUIBB COMPANY-2023-123202

PATIENT
  Age: 78 Year
  Sex: Male
  Weight: 114 kg

DRUGS (70)
  1. ELIQUIS [Suspect]
     Active Substance: APIXABAN
     Indication: Atrial fibrillation
     Route: 048
     Dates: start: 20230222
  2. ELIQUIS [Suspect]
     Active Substance: APIXABAN
     Route: 048
     Dates: end: 20230331
  3. ELIQUIS [Suspect]
     Active Substance: APIXABAN
     Route: 048
     Dates: start: 20230331
  4. ELIQUIS [Suspect]
     Active Substance: APIXABAN
     Route: 048
     Dates: start: 20230925
  5. NORVASC [Concomitant]
     Active Substance: AMLODIPINE BESYLATE
     Indication: Product used for unknown indication
     Dosage: FREQUENCY: TAKE 1 TABLET BY MOUTH EVERY NIGHT
     Route: 048
     Dates: start: 20230222, end: 20230829
  6. VITAMIN C [Concomitant]
     Active Substance: ASCORBIC ACID
     Indication: Product used for unknown indication
     Dosage: FREQUENCY: TAKE 250 MG BY MOUTH DAILY
     Route: 048
     Dates: end: 20230829
  7. VITAMIN B COMPLEX [Concomitant]
     Active Substance: CYANOCOBALAMIN\DEXPANTHENOL\NIACINAMIDE\PYRIDOXINE HYDROCHLORIDE\RIBOFLAVIN 5^-PHOSPHATE SODIUM\THIA
     Indication: Product used for unknown indication
     Route: 048
  8. BIOTIN [Concomitant]
     Active Substance: BIOTIN
     Indication: Product used for unknown indication
     Route: 048
  9. CALCIUM [Concomitant]
     Active Substance: CALCIUM
     Indication: Product used for unknown indication
     Route: 048
  10. CALCIUM [Concomitant]
     Active Substance: CALCIUM
     Dates: start: 20230822
  11. VITAMIN B12 [Concomitant]
     Active Substance: CYANOCOBALAMIN
     Indication: Product used for unknown indication
     Route: 048
     Dates: end: 20230829
  12. LEXAPRO [Concomitant]
     Active Substance: ESCITALOPRAM OXALATE
     Indication: Product used for unknown indication
     Dosage: FREQUENCY: TAKE 1 TABLET BY MOUTH DAILY
     Route: 048
     Dates: start: 20230105
  13. LEXAPRO [Concomitant]
     Active Substance: ESCITALOPRAM OXALATE
     Dosage: FREQUENCY: TAKE 1 TABLET BY MOUTH DAILY
     Dates: start: 20230822
  14. TRICOR [Concomitant]
     Active Substance: FENOFIBRATE
     Indication: Product used for unknown indication
     Dosage: FREQUENCY: TAKE 145 MG BY MOUTH DAILY
     Route: 048
     Dates: start: 20220616, end: 20230829
  15. IRON [Concomitant]
     Active Substance: IRON
     Indication: Product used for unknown indication
     Route: 048
     Dates: end: 20230829
  16. NORCO [Concomitant]
     Active Substance: ACETAMINOPHEN\HYDROCODONE BITARTRATE
     Indication: Product used for unknown indication
     Dosage: HYDROCODONE-ACETAMINOPHEN (NORCO) 5-325 MG PER TABLET, 1 TABLET BY MOUTH
     Route: 048
     Dates: start: 20230214
  17. LUTEIN [Concomitant]
     Active Substance: LUTEIN
     Indication: Product used for unknown indication
     Route: 048
  18. TOPROL XL [Concomitant]
     Active Substance: METOPROLOL SUCCINATE
     Indication: Product used for unknown indication
     Dosage: TOPROL-XL 25 MG 24 HOUR TABLET, TAKE 12.5 MG BY MOUTH DAILY
     Route: 048
     Dates: start: 20220829, end: 20230824
  19. TOPROL XL [Concomitant]
     Active Substance: METOPROLOL SUCCINATE
     Dosage: TOPROL-XL  24 HOUR TABLET, 12.5 MG
     Dates: start: 20230822
  20. TOPROL XL [Concomitant]
     Active Substance: METOPROLOL SUCCINATE
     Dosage: TOPROL-XL 25 MG 24 HOUR TABLET, TAKE 1 TABLET BY MOUTH DAILY
     Route: 048
     Dates: start: 20230825
  21. VITAMINS NOS [Concomitant]
     Active Substance: VITAMINS
     Indication: Product used for unknown indication
     Dosage: TAKE BY MOUTH DAILY
     Route: 048
  22. NITROSTAT [Concomitant]
     Active Substance: NITROGLYCERIN
     Indication: Chest pain
     Dosage: ONE TABLET UNDER TONGUE AS NEEDED FOR CHEST PAIN, EVERY 5 MINUTES CAN TAKE UP TO 3 DOSES. IF PAIN DO
     Route: 048
     Dates: start: 20221110
  23. NITROSTAT [Concomitant]
     Active Substance: NITROGLYCERIN
     Dates: start: 20230822
  24. DITROPAN XL [Concomitant]
     Active Substance: OXYBUTYNIN CHLORIDE
     Indication: Product used for unknown indication
     Dosage: TAKE 10 MG BY MOUTH DAILY
     Route: 048
     Dates: start: 20221214, end: 20230829
  25. DITROPAN XL [Concomitant]
     Active Substance: OXYBUTYNIN CHLORIDE
     Dates: start: 20230822
  26. PROTONIX [Concomitant]
     Active Substance: PANTOPRAZOLE SODIUM
     Indication: Product used for unknown indication
     Dosage: PROTONIX 40 MG EC TABLET
     Dates: start: 20230822
  27. PROTONIX [Concomitant]
     Active Substance: PANTOPRAZOLE SODIUM
     Dosage: PROTONIX 40 MG EC TABLET, TAKE 40 MG BY MOUTH DAILY
     Route: 048
     Dates: end: 20230829
  28. DELTASONE [Concomitant]
     Active Substance: PREDNISONE
     Indication: Product used for unknown indication
     Route: 048
     Dates: start: 20171028, end: 20230820
  29. DELTASONE [Concomitant]
     Active Substance: PREDNISONE
     Dates: start: 20230822
  30. SYNTHROID [Concomitant]
     Active Substance: LEVOTHYROXINE SODIUM
     Indication: Product used for unknown indication
     Route: 048
     Dates: start: 20230125
  31. FLOMAX [Concomitant]
     Active Substance: TAMSULOSIN HYDROCHLORIDE
     Indication: Product used for unknown indication
     Dosage: TAKE 1 CAPSULE BY MOUTH EVERY NIGHT
     Route: 048
     Dates: start: 20221214, end: 20230829
  32. FLOMAX [Concomitant]
     Active Substance: TAMSULOSIN HYDROCHLORIDE
     Dates: start: 20230822
  33. FLOMAX [Concomitant]
     Active Substance: TAMSULOSIN HYDROCHLORIDE
     Dosage: TAKE 1 CAPSULE BY MOUTH EVERY NIGHT
     Route: 048
     Dates: start: 20230829
  34. DESYREL [Concomitant]
     Active Substance: TRAZODONE HYDROCHLORIDE
     Indication: Product used for unknown indication
     Dosage: TAKE 1 TABLET BY MOUTH EVERY NIGHT
     Route: 048
     Dates: start: 20230105, end: 20230829
  35. DIOVAN [Concomitant]
     Active Substance: VALSARTAN
     Indication: Product used for unknown indication
     Dosage: TAKE 160 MG BY MOUTH DAILY
     Route: 048
  36. DIOVAN [Concomitant]
     Active Substance: VALSARTAN
     Dosage: TAKE 1 TABLET BY MOUTH EVERY MORNING
     Route: 048
     Dates: start: 20230222
  37. ZOCOR [Concomitant]
     Active Substance: SIMVASTATIN
     Indication: Product used for unknown indication
     Dosage: TAKE 1 TABLET BY MOUTH EVERY NIGHT
     Route: 048
  38. CRESTOR [Concomitant]
     Active Substance: ROSUVASTATIN CALCIUM
     Indication: Product used for unknown indication
     Dosage: TAKE 1 TABLET BY MOUTH EVERY NIGHT
     Route: 048
     Dates: start: 20230222, end: 20230526
  39. CRESTOR [Concomitant]
     Active Substance: ROSUVASTATIN CALCIUM
     Dosage: TAKE 1 TABLET BY MOUTH EVERY NIGHT
     Dates: start: 20230822
  40. CRESTOR [Concomitant]
     Active Substance: ROSUVASTATIN CALCIUM
     Dosage: TAKE 1 TABLET BY MOUTH EVERY NIGHT
     Route: 048
     Dates: start: 20230829
  41. PLAVIX [Concomitant]
     Active Substance: CLOPIDOGREL BISULFATE
     Indication: Product used for unknown indication
     Route: 048
     Dates: start: 20230822
  42. PLAVIX [Concomitant]
     Active Substance: CLOPIDOGREL BISULFATE
     Dates: start: 20230822
  43. JARDIANCE [Concomitant]
     Active Substance: EMPAGLIFLOZIN
     Indication: Product used for unknown indication
     Route: 048
     Dates: start: 20230912
  44. SUBLIMAZE [Concomitant]
     Active Substance: FENTANYL CITRATE
     Indication: Product used for unknown indication
     Dosage: TOTAL DOSE: 75 MCG
     Dates: start: 20230822
  45. VERSED [Concomitant]
     Active Substance: MIDAZOLAM HYDROCHLORIDE
     Indication: Product used for unknown indication
     Dosage: TOTAL DOSE: 2,5 MG
     Dates: start: 20230822
  46. VERSED [Concomitant]
     Active Substance: MIDAZOLAM HYDROCHLORIDE
     Dosage: TOTAL DOSE: 2,5 MG
     Dates: start: 20230822
  47. SODIUM CHLORIDE [Concomitant]
     Active Substance: SODIUM CHLORIDE
     Indication: Product used for unknown indication
     Dosage: 50 ML/ HR
     Dates: start: 20230822
  48. SODIUM CHLORIDE [Concomitant]
     Active Substance: SODIUM CHLORIDE
     Dosage: 30 ML/ HR
     Dates: start: 20230822
  49. SODIUM CHLORIDE [Concomitant]
     Active Substance: SODIUM CHLORIDE
     Dosage: 75 ML/ HR
     Dates: start: 20230822
  50. SODIUM CHLORIDE [Concomitant]
     Active Substance: SODIUM CHLORIDE
     Dosage: FLUSH
     Dates: start: 20230822
  51. SODIUM CHLORIDE [Concomitant]
     Active Substance: SODIUM CHLORIDE
     Dosage: 40 ML
     Dates: start: 20230822
  52. XYLOCAINE [Concomitant]
     Active Substance: LIDOCAINE HYDROCHLORIDE
     Indication: Product used for unknown indication
     Dates: start: 20230822
  53. ISOPTIN [Concomitant]
     Active Substance: VERAPAMIL HYDROCHLORIDE
     Indication: Product used for unknown indication
     Dates: start: 20230822
  54. NITROGLYCERIN [Concomitant]
     Active Substance: NITROGLYCERIN
     Indication: Product used for unknown indication
     Dates: start: 20230822
  55. ISOVUE 370 [Concomitant]
     Active Substance: IOPAMIDOL
     Indication: Product used for unknown indication
     Dates: start: 20230822
  56. ASPIRIN [Concomitant]
     Active Substance: ASPIRIN
     Indication: Product used for unknown indication
     Dates: start: 20230822
  57. ZITHROMAX [Concomitant]
     Active Substance: AZITHROMYCIN DIHYDRATE
     Indication: Product used for unknown indication
     Dosage: AZITHROMYCIN (ZITHROMAX) 500 MG IN SODIUM CHLORIDE 0.9% 250 ML IVPB-VTB
     Dates: start: 20230822
  58. ROCEPHIN [Concomitant]
     Active Substance: CEFTRIAXONE SODIUM
     Indication: Product used for unknown indication
     Dosage: CEFTRIAXONE (ROCEPHIN) 2000 MG IN SODIUM CHLORIDE 0.9% 100 ML IVPB-VTB?2000 MG- 200 ML/ HR (OVER 30
     Dates: start: 20230822
  59. ALBUTEROL\IPRATROPIUM [Concomitant]
     Active Substance: ALBUTEROL\IPRATROPIUM
     Indication: Product used for unknown indication
     Dosage: IBRATROPIUM-ALBUTEROL (DUO-NEB) NEBULIZER SOLUTION 3 ML
     Dates: start: 20230822
  60. ALBUTEROL\IPRATROPIUM [Concomitant]
     Active Substance: ALBUTEROL\IPRATROPIUM
     Dates: start: 20230822
  61. ASPIRIN [Concomitant]
     Active Substance: ASPIRIN
     Indication: Product used for unknown indication
     Dates: start: 20230822
  62. DEXTROSE [Concomitant]
     Active Substance: DEXTROSE\DEXTROSE MONOHYDRATE
     Indication: Product used for unknown indication
     Dosage: DEXTROSE (D50W) (25 G/ 50 ML) IV INJECTION 25 G
     Route: 042
     Dates: start: 20230822
  63. GLUTOSE [Concomitant]
     Active Substance: DEXTROSE
     Indication: Product used for unknown indication
     Dates: start: 20230822
  64. GLUCOGEN [Concomitant]
     Indication: Product used for unknown indication
     Dates: start: 20230822
  65. HEPARIN [Concomitant]
     Active Substance: HEPARIN SODIUM
     Indication: Product used for unknown indication
     Dosage: HEPARIN 25000 UNITS/ 250 ML (100 UNITS/ ML) IN 0.45 % NACL INFUSION ?18.3 UNITS/ KG/ HR- 20.6 ML/HR
     Dates: start: 20230822
  66. HEPARIN [Concomitant]
     Active Substance: HEPARIN SODIUM
     Dosage: HEPARIN 25000 UNITS/ 250 ML (100 UNITS/ ML) IN 0.45 % NACL INFUSION ?16.3 UNITS/ KG/ HR- 18.41 ML/HR
     Dates: start: 20230822
  67. MAGNESIUM [Concomitant]
     Active Substance: MAGNESIUM
     Indication: Product used for unknown indication
     Dates: start: 20230822
  68. MELATONIN [Concomitant]
     Active Substance: MELATONIN
     Indication: Product used for unknown indication
     Dates: start: 20230822
  69. TRIDIL [GLYCERYL TRINITRATE] [Concomitant]
     Indication: Product used for unknown indication
     Dates: start: 20230822
  70. PHOSPHORUS [Concomitant]
     Active Substance: PHOSPHORUS
     Indication: Product used for unknown indication
     Dates: start: 20230822

REACTIONS (3)
  - Acute myocardial infarction [Unknown]
  - Nasopharyngitis [Unknown]
  - Acute respiratory failure [Unknown]

NARRATIVE: CASE EVENT DATE: 20230820
